FAERS Safety Report 11452522 (Version 1)
Quarter: 2015Q3

REPORT INFORMATION
  Report Type: Spontaneous
  Country: US (occurrence: US)
  Receive Date: 20150903
  Receipt Date: 20150903
  Transmission Date: 20151125
  Serious: Yes (Death)
  Sender: FDA-Public Use
  Company Number: US-PFIZER INC-2015282227

PATIENT
  Age: 46 Year
  Sex: Male

DRUGS (1)
  1. SUTENT [Suspect]
     Active Substance: SUNITINIB MALATE
     Indication: RENAL CANCER
     Dosage: 50MG ONE DAILY ON DAYS 1-28 OF 42 DAY CYCLE
     Route: 048
     Dates: start: 201505

REACTIONS (1)
  - Death [Fatal]

NARRATIVE: CASE EVENT DATE: 20150814
